FAERS Safety Report 5239182-0 (Version None)
Quarter: 2007Q1

REPORT INFORMATION
  Report Type: 
  Country: None (occurrence: None)
  Receive Date: 20061208
  Receipt Date: 20050908
  Transmission Date: 20070707
  Serious: Yes (Other)
  Sender: FDA-Public Use
  Company Number: 2005UW13345

PATIENT
  Age: 60 Year
  Sex: Female
  Weight: 79.832 kg

DRUGS (4)
  1. CRESTOR [Suspect]
     Indication: BLOOD CHOLESTEROL INCREASED
     Dosage: 10 MG PO
     Route: 048
     Dates: start: 20050801
  2. SYNTHROID [Concomitant]
  3. TARKA [Concomitant]
  4. CELEBREX [Concomitant]

REACTIONS (1)
  - HOT FLUSH [None]
